FAERS Safety Report 11110815 (Version 1)
Quarter: 2015Q2

REPORT INFORMATION
  Report Type: Other
  Country: GB (occurrence: GB)
  Receive Date: 20150513
  Receipt Date: 20150513
  Transmission Date: 20150821
  Serious: Yes (Other)
  Sender: FDA-Public Use
  Company Number: GB-PERRIGO-15GB004827

PATIENT
  Age: 28 Year
  Sex: Female

DRUGS (1)
  1. LORATADINE 16028/0080 10 MG [Suspect]
     Active Substance: LORATADINE
     Indication: PRODUCT USED FOR UNKNOWN INDICATION
     Dosage: UNK
     Route: 065

REACTIONS (2)
  - Speech disorder [Recovered/Resolved]
  - Throat tightness [Recovered/Resolved]
